FAERS Safety Report 23580057 (Version 1)
Quarter: 2024Q1

REPORT INFORMATION
  Report Type: Spontaneous
  Country: IT (occurrence: IT)
  Receive Date: 20240229
  Receipt Date: 20240229
  Transmission Date: 20240410
  Serious: Yes (Death, Hospitalization)
  Sender: FDA-Public Use
  Company Number: IT-ROCHE-3515012

PATIENT
  Sex: Female
  Weight: 110 kg

DRUGS (50)
  1. HERCEPTIN [Suspect]
     Active Substance: TRASTUZUMAB
     Indication: Breast cancer metastatic
     Dosage: MOST RECENT DOSE PRIOR TO THE EVENT: 14 MAY 2019
     Route: 065
     Dates: start: 20190514
  2. HERCEPTIN [Suspect]
     Active Substance: TRASTUZUMAB
     Route: 065
     Dates: start: 20170620
  3. HERCEPTIN [Suspect]
     Active Substance: TRASTUZUMAB
     Dosage: MOST RECENT DOSE PRIOR TO THE EVENT: 20/JUN/2017
     Route: 065
     Dates: start: 20170303, end: 20170303
  4. HERCEPTIN [Suspect]
     Active Substance: TRASTUZUMAB
     Route: 065
     Dates: start: 20170330
  5. XELODA [Suspect]
     Active Substance: CAPECITABINE
     Indication: Breast cancer metastatic
     Dosage: MOST RECENT DOSE PRIOR TO THE EVENT: 1/SEP/2020
     Route: 048
     Dates: start: 20200901
  6. XELODA [Suspect]
     Active Substance: CAPECITABINE
     Dosage: MOST RECENT DOSE PRIOR TO THE EVENT: 09/DEC/2019?1500 MG TWICE A DAY
     Route: 048
     Dates: start: 20191209, end: 20191230
  7. XELODA [Suspect]
     Active Substance: CAPECITABINE
     Dosage: 1500 MG TWICE PER DAY
     Route: 048
     Dates: start: 20200618
  8. XELODA [Suspect]
     Active Substance: CAPECITABINE
     Route: 048
     Dates: start: 20200120, end: 20200611
  9. KADCYLA [Suspect]
     Active Substance: ADO-TRASTUZUMAB EMTANSINE
     Indication: Breast cancer metastatic
     Route: 065
     Dates: start: 20190814, end: 20190814
  10. KADCYLA [Suspect]
     Active Substance: ADO-TRASTUZUMAB EMTANSINE
     Route: 065
     Dates: start: 20190904
  11. KADCYLA [Suspect]
     Active Substance: ADO-TRASTUZUMAB EMTANSINE
     Dosage: MOST RECENT DOSE PRIOR TO THE EVENT: 04/SEP/2019
     Route: 065
     Dates: start: 20190612, end: 20190703
  12. KADCYLA [Suspect]
     Active Substance: ADO-TRASTUZUMAB EMTANSINE
     Route: 065
     Dates: start: 20190724, end: 20190724
  13. KADCYLA [Suspect]
     Active Substance: ADO-TRASTUZUMAB EMTANSINE
     Dosage: MOST RECENT DOSE PRIOR TO THE EVENT: 12 NOV 2019
     Route: 065
     Dates: start: 20191112
  14. PERJETA [Suspect]
     Active Substance: PERTUZUMAB
     Indication: Breast cancer metastatic
     Dosage: MOST RECENT DOSE PRIOR TO THE EVENT: 20/JUN/2020
     Route: 065
     Dates: start: 20170303, end: 20170303
  15. PERJETA [Suspect]
     Active Substance: PERTUZUMAB
     Route: 065
     Dates: start: 20170330, end: 20170606
  16. PERJETA [Suspect]
     Active Substance: PERTUZUMAB
     Dosage: MOST RECENT DOSE PRIOR TO THE EVENT: 14/MAY/2019
     Route: 065
     Dates: start: 20190514
  17. PERJETA [Suspect]
     Active Substance: PERTUZUMAB
     Route: 065
     Dates: start: 20170620
  18. ERIBULIN [Suspect]
     Active Substance: ERIBULIN
     Indication: Product used for unknown indication
     Route: 065
     Dates: start: 20210712, end: 20210825
  19. TYKERB [Suspect]
     Active Substance: LAPATINIB DITOSYLATE
     Indication: Breast cancer metastatic
     Dosage: MOST RECENT DOSE PRIOR TO AE 19/JUN/2020
     Route: 065
     Dates: start: 20191209, end: 20200619
  20. ARIMIDEX [Suspect]
     Active Substance: ANASTROZOLE
     Indication: Breast cancer metastatic
     Dosage: MOST RECENT DOSE PRIOR TO AE 12/JUN/2019
     Route: 065
     Dates: start: 20170918, end: 20190612
  21. PACLITAXEL [Suspect]
     Active Substance: PACLITAXEL
     Indication: Breast cancer metastatic
     Dosage: MOST RECENT DOSE PRIOR TO THE EVENT: 12/SEP/2017
     Route: 065
     Dates: start: 20170912
  22. PACLITAXEL [Suspect]
     Active Substance: PACLITAXEL
     Route: 065
     Dates: start: 20170627
  23. PACLITAXEL [Suspect]
     Active Substance: PACLITAXEL
     Route: 065
     Dates: start: 20170420, end: 20170606
  24. PACLITAXEL [Suspect]
     Active Substance: PACLITAXEL
     Dosage: MOST RECENT DOSE PRIOR TO THE EVENT: 24/SEP/2020
     Route: 065
     Dates: start: 20200924
  25. PACLITAXEL [Suspect]
     Active Substance: PACLITAXEL
     Route: 065
     Dates: start: 20170620, end: 20170620
  26. PACLITAXEL [Suspect]
     Active Substance: PACLITAXEL
     Dosage: MOST RECENT DOSE PRIOR TO THE EVENT: 27/JUN/2017
     Route: 065
     Dates: start: 20170303, end: 20170413
  27. ONDANSETRON [Concomitant]
     Active Substance: ONDANSETRON
     Dates: start: 20200924
  28. CALCIUM CARBONATE\CHOLECALCIFEROL [Concomitant]
     Active Substance: CALCIUM CARBONATE\CHOLECALCIFEROL
     Indication: Vitamin D deficiency
     Dosage: ONGOING = CHECKED
     Dates: start: 20180320
  29. ERTAPENEM [Concomitant]
     Active Substance: ERTAPENEM
     Dates: start: 20200813, end: 20200828
  30. INSULIN GLARGINE [Concomitant]
     Active Substance: INSULIN GLARGINE
     Dosage: ONGOING=CHECKED
     Dates: start: 20190901
  31. CITALOPRAM [Concomitant]
     Active Substance: CITALOPRAM HYDROBROMIDE
  32. DEXAMETHASONE [Concomitant]
     Active Substance: DEXAMETHASONE
     Dates: start: 20170303, end: 20171003
  33. DEXAMETHASONE [Concomitant]
     Active Substance: DEXAMETHASONE
     Dates: start: 20200924
  34. DEXAMETHASONE [Concomitant]
     Active Substance: DEXAMETHASONE
     Dates: start: 20190612, end: 20191112
  35. LOSARTAN [Concomitant]
     Active Substance: LOSARTAN
     Indication: Hypertensive crisis
     Dosage: ONGOING = CHECKED
     Dates: end: 20180312
  36. LOSARTAN [Concomitant]
     Active Substance: LOSARTAN
     Dosage: ONGOING = CHECKED
     Dates: start: 20180313
  37. CHOLECALCIFEROL [Concomitant]
     Active Substance: CHOLECALCIFEROL
     Indication: Vitamin D deficiency
     Dosage: ONGOING = CHECKED
     Dates: start: 20180320
  38. RANITIDINE [Concomitant]
     Active Substance: RANITIDINE
     Dates: start: 20180303, end: 20180912
  39. CHLORPHENIRAMINE MALEATE [Concomitant]
     Active Substance: CHLORPHENIRAMINE MALEATE
     Dates: start: 20200924
  40. TORSEMIDE [Concomitant]
     Active Substance: TORSEMIDE
     Indication: Hypertensive crisis
     Dosage: ONGOING = CHECKED
     Dates: start: 20180313
  41. FENTANYL [Concomitant]
     Active Substance: FENTANYL\FENTANYL CITRATE
  42. ZOLEDRONIC ACID [Concomitant]
     Active Substance: ZOLEDRONIC ACID
     Dates: start: 20170320
  43. ZOLEDRONIC ACID [Concomitant]
     Active Substance: ZOLEDRONIC ACID
     Dosage: ONGOING = CHECKED
     Dates: start: 20170215
  44. ZOLEDRONIC ACID [Concomitant]
     Active Substance: ZOLEDRONIC ACID
     Dosage: ONGOING = CHECKED?EVERY 28GG
     Dates: start: 20200120
  45. INSULIN GLARGINE [Concomitant]
     Active Substance: INSULIN GLARGINE
  46. ATENOLOL [Concomitant]
     Active Substance: ATENOLOL
  47. CIMETIDINE [Concomitant]
     Active Substance: CIMETIDINE
     Dates: start: 20200924
  48. GLYCOPYRROLATE [Concomitant]
     Active Substance: GLYCOPYRROLATE
  49. OMEPRAZOLE [Concomitant]
     Active Substance: OMEPRAZOLE
  50. PREDNISONE [Concomitant]
     Active Substance: PREDNISONE

REACTIONS (7)
  - Cardiac failure [Fatal]
  - Hypertrophic cardiomyopathy [Recovered/Resolved]
  - Palmar-plantar erythrodysaesthesia syndrome [Recovered/Resolved]
  - Vitamin D deficiency [Recovered/Resolved]
  - Thrombocytopenia [Recovered/Resolved]
  - Epistaxis [Recovered/Resolved]
  - Fatigue [Recovered/Resolved]

NARRATIVE: CASE EVENT DATE: 20180320
